FAERS Safety Report 11749082 (Version 1)
Quarter: 2015Q4

REPORT INFORMATION
  Report Type: Report from Study
  Country: US (occurrence: US)
  Receive Date: 20151118
  Receipt Date: 20151118
  Transmission Date: 20160304
  Serious: No
  Sender: FDA-Public Use
  Company Number: US-AMGEN-USASL2015116314

PATIENT
  Age: 56 Year
  Sex: Male

DRUGS (1)
  1. ENBREL [Suspect]
     Active Substance: ETANERCEPT
     Indication: PSORIATIC ARTHROPATHY
     Dosage: 50 MG, UNK (EVERY 13 TO 14 DAYS)
     Route: 065
     Dates: start: 2003

REACTIONS (8)
  - Incorrect product storage [Unknown]
  - Rash [Unknown]
  - Impaired healing [Unknown]
  - Hypersensitivity [Unknown]
  - Blood blister [Unknown]
  - Infection [Unknown]
  - Furuncle [Unknown]
  - Inappropriate schedule of drug administration [Unknown]
